FAERS Safety Report 11835941 (Version 3)
Quarter: 2016Q1

REPORT INFORMATION
  Report Type: Report from Study
  Country: JP (occurrence: JP)
  Receive Date: 20151215
  Receipt Date: 20160211
  Transmission Date: 20160525
  Serious: Yes (Death, Hospitalization)
  Sender: FDA-Public Use
  Company Number: JP-009507513-1512JPN006408

PATIENT
  Age: 63 Year
  Sex: Male

DRUGS (8)
  1. VANCOMYCIN HYDROCHLORIDE. [Concomitant]
     Active Substance: VANCOMYCIN HYDROCHLORIDE
     Indication: STAPHYLOCOCCAL SEPSIS
     Dosage: 2 G, QD. DIVIDED DOSE FREQUENCY UNKNOWN
     Route: 041
     Dates: start: 20150728, end: 20150729
  2. ZYVOX [Concomitant]
     Active Substance: LINEZOLID
     Indication: STAPHYLOCOCCAL SEPSIS
     Dosage: 600 MG, BID
     Route: 051
     Dates: start: 20150729, end: 20150803
  3. NOREPINEPHRINE [Concomitant]
     Active Substance: NOREPINEPHRINE\NOREPINEPHRINE BITARTRATE
     Indication: DISSEMINATED INTRAVASCULAR COAGULATION
     Dosage: 1 DF, QD (CONTINUOUS)
     Route: 051
     Dates: start: 20150728, end: 20150814
  4. THYRADIN [Concomitant]
     Active Substance: LEVOTHYROXINE
     Dosage: 50 MICROGRAM, QD
     Route: 048
     Dates: start: 20150725, end: 20150821
  5. SOLU-MEDROL [Concomitant]
     Active Substance: METHYLPREDNISOLONE SODIUM SUCCINATE
     Indication: DISSEMINATED INTRAVASCULAR COAGULATION
     Dosage: 75 MG, QD
     Route: 051
     Dates: start: 20150729, end: 20150802
  6. PITRESSIN [Concomitant]
     Active Substance: VASOPRESSIN
     Indication: PROPHYLAXIS
     Dosage: 40 UNDER 1000 UNIT, QD
     Route: 051
     Dates: start: 20150729, end: 20150821
  7. CUBICIN [Suspect]
     Active Substance: DAPTOMYCIN
     Indication: STAPHYLOCOCCAL SEPSIS
     Dosage: 6 MG/KG, QOD
     Route: 041
     Dates: start: 20150729, end: 20150807
  8. OMEPRAL [Concomitant]
     Active Substance: OMEPRAZOLE
     Indication: PROPHYLAXIS
     Dosage: 20 MG, QD
     Route: 051
     Dates: start: 20150728, end: 20150806

REACTIONS (9)
  - Systemic candida [Fatal]
  - Pneumonia [Fatal]
  - Bradycardia [Recovered/Resolved]
  - Drug ineffective [Unknown]
  - White blood cell count decreased [Recovered/Resolved]
  - Pneumothorax [Fatal]
  - Staphylococcal sepsis [Fatal]
  - Escherichia bacteraemia [Fatal]
  - Blood creatine phosphokinase increased [Recovered/Resolved]

NARRATIVE: CASE EVENT DATE: 201507
